FAERS Safety Report 21238050 (Version 1)
Quarter: 2022Q3

REPORT INFORMATION
  Report Type: Spontaneous
  Country: US (occurrence: US)
  Receive Date: 20220822
  Receipt Date: 20220822
  Transmission Date: 20221026
  Serious: No
  Sender: FDA-Public Use
  Company Number: US-MYLANLABS-2022M1087190

PATIENT
  Sex: Male
  Weight: 86.18 kg

DRUGS (5)
  1. SEMGLEE (INSULIN GLARGINE-YFGN) [Suspect]
     Active Substance: INSULIN GLARGINE-YFGN
     Indication: Type 2 diabetes mellitus
     Dosage: 20 INTERNATIONAL UNIT, QD
     Route: 058
  2. GLIMEPIRIDE [Concomitant]
     Active Substance: GLIMEPIRIDE
     Dosage: 2 DOSAGE FORM, QD (2X A DAY)
     Route: 065
  3. ATORVASTATIN [Concomitant]
     Active Substance: ATORVASTATIN
     Indication: Blood cholesterol
     Dosage: 1 DOSAGE FORM, QD (ONCE A DAY)
     Route: 065
  4. TAMSULOSIN [Concomitant]
     Active Substance: TAMSULOSIN
     Indication: Bladder disorder
     Dosage: 1 DOSAGE FORM, QD (ONCE A DAY)
     Route: 065
  5. DOFETILIDE [Concomitant]
     Active Substance: DOFETILIDE
     Indication: Heart rate irregular
     Dosage: 2 DOSAGE FORM, QD (2X A DAY EVERY 12 HOURS)
     Route: 065

REACTIONS (4)
  - Gait disturbance [Unknown]
  - Constipation [Unknown]
  - Weight increased [Unknown]
  - Device delivery system issue [Unknown]
